FAERS Safety Report 5630592-6 (Version None)
Quarter: 2008Q1

REPORT INFORMATION
  Report Type: 
  Country: None (occurrence: None)
  Receive Date: 20080219
  Receipt Date: 20080214
  Transmission Date: 20080703
  Serious: Yes (Hospitalization)
  Sender: FDA-Public Use
  Company Number: B0508537A

PATIENT
  Age: 80 Year
  Sex: Male

DRUGS (1)
  1. ROPINIROLE HCL [Suspect]
     Indication: PARKINSON'S DISEASE
     Route: 048

REACTIONS (1)
  - PSYCHOTIC DISORDER [None]
